FAERS Safety Report 9741801 (Version 3)
Quarter: 2014Q1

REPORT INFORMATION
  Report Type: Report from Study
  Country: CA (occurrence: CA)
  Receive Date: 20131210
  Receipt Date: 20140210
  Transmission Date: 20141002
  Serious: Yes (Other)
  Sender: FDA-Public Use
  Company Number: CA-ROCHE-1309638

PATIENT
  Age: 43 Year
  Sex: Male

DRUGS (4)
  1. PEGASYS [Suspect]
     Indication: CHRONIC HEPATITIS C
     Dosage: 180 MCG/0.5 ML
     Route: 058
     Dates: start: 20131025, end: 20131115
  2. COPEGUS [Suspect]
     Indication: CHRONIC HEPATITIS C
     Dosage: 42 TABLETS PER WEEK
     Route: 048
     Dates: start: 20131025, end: 20131115
  3. METFORMIN [Concomitant]
     Indication: DIABETES MELLITUS
  4. VENTOLIN [Concomitant]
     Route: 055

REACTIONS (3)
  - Thrombosis [Not Recovered/Not Resolved]
  - Visual impairment [Not Recovered/Not Resolved]
  - Therapeutic product ineffective [Unknown]
